FAERS Safety Report 22803651 (Version 2)
Quarter: 2023Q4

REPORT INFORMATION
  Report Type: Report from Study
  Country: AR (occurrence: AR)
  Receive Date: 20230809
  Receipt Date: 20231115
  Transmission Date: 20240110
  Serious: Yes (Life-Threatening, Other)
  Sender: FDA-Public Use
  Company Number: AR-002147023-NVSC2023AR173056

PATIENT
  Sex: Male

DRUGS (2)
  1. COSENTYX [Suspect]
     Active Substance: SECUKINUMAB
     Indication: Psoriasis
     Dosage: 300 MG, QMO
     Route: 065
  2. COSENTYX [Suspect]
     Active Substance: SECUKINUMAB
     Indication: Psoriatic arthropathy
     Dosage: 150 MG, Q2W
     Route: 065
     Dates: start: 202112

REACTIONS (6)
  - Functional gastrointestinal disorder [Unknown]
  - Chromaturia [Unknown]
  - Hepatic function abnormal [Unknown]
  - Cholecystitis [Unknown]
  - Weight decreased [Unknown]
  - Inappropriate schedule of product administration [Unknown]
